FAERS Safety Report 8501631 (Version 3)
Quarter: 2013Q1

REPORT INFORMATION
  Report Type: Spontaneous
  Country: US (occurrence: US)
  Receive Date: 20120410
  Receipt Date: 20130102
  Transmission Date: 20140127
  Serious: Yes (Congenital Anomaly, Other)
  Sender: FDA-Public Use
  Company Number: US-PFIZER INC-2012087266

PATIENT
  Sex: Male

DRUGS (8)
  1. ZOLOFT [Suspect]
     Indication: ANXIETY
     Dosage: UNK
     Route: 064
     Dates: start: 200003
  2. ZOLOFT [Suspect]
     Indication: DEPRESSION
     Dosage: 100 MG, 1X/DAY
     Route: 064
     Dates: start: 20020124
  3. ZOLOFT [Suspect]
     Indication: AFFECTIVE DISORDER
  4. TYLENOL [Concomitant]
     Indication: NASOPHARYNGITIS
     Dosage: UNK
     Route: 064
  5. IBUPROFEN [Concomitant]
     Dosage: UNK
     Route: 064
  6. PRENATAL VITAMINS [Concomitant]
     Dosage: UNK
     Route: 064
  7. AMOXICILLIN [Concomitant]
     Dosage: 875 MG, 2X/DAY
     Route: 064
     Dates: start: 20020203
  8. PROMETHAZINE W/CODEINE [Concomitant]
     Dosage: UNK
     Route: 064
     Dates: start: 20020328

REACTIONS (7)
  - Maternal exposure timing unspecified [Unknown]
  - Congenital hydrocephalus [Recovered/Resolved]
  - Congenital anomaly [Unknown]
  - Macrocephaly [Unknown]
  - Otitis media [Unknown]
  - Cerebral ventricle dilatation [Unknown]
  - Attention deficit/hyperactivity disorder [Unknown]
